FAERS Safety Report 7948156-8 (Version None)
Quarter: 2011Q4

REPORT INFORMATION
  Report Type: 
  Country: None (occurrence: None)
  Receive Date: 20111130
  Receipt Date: 20111122
  Transmission Date: 20120403
  Serious: Yes (Hospitalization)
  Sender: FDA-Public Use
  Company Number: FR-JNJFOC-20111100467

PATIENT
  Age: 28 Year
  Sex: Female

DRUGS (7)
  1. MALARONE [Concomitant]
     Route: 065
     Dates: start: 20110701
  2. FLAGYL [Suspect]
     Indication: SEPTIC SHOCK
     Route: 065
     Dates: start: 20111005, end: 20111007
  3. PIPERACILLIN AND TAZOBACTAM [Suspect]
     Indication: SEPTIC SHOCK
     Route: 065
     Dates: start: 20111005, end: 20111006
  4. LEVOFLOXACIN [Suspect]
     Indication: SEPTIC SHOCK
     Route: 065
     Dates: start: 20111005, end: 20111007
  5. OTHER THERAPEUTIC PRODUCTS [Concomitant]
     Route: 065
  6. CEFTRIAXONE [Suspect]
     Indication: SEPTIC SHOCK
     Route: 065
     Dates: start: 20111008
  7. CEFTRIAXONE [Suspect]
     Route: 065
     Dates: start: 20111005

REACTIONS (2)
  - THROMBOCYTOPENIA [None]
  - APLASIA PURE RED CELL [None]
